FAERS Safety Report 12991435 (Version 2)
Quarter: 2017Q1

REPORT INFORMATION
  Report Type: Spontaneous
  Country: JP (occurrence: JP)
  Receive Date: 20161201
  Receipt Date: 20170106
  Transmission Date: 20170428
  Serious: Yes (Hospitalization)
  Sender: FDA-Public Use
  Company Number: JP-FERRINGPH-2016FE06275

PATIENT

DRUGS (1)
  1. GONAX [Suspect]
     Active Substance: DEGARELIX
     Indication: PROSTATE CANCER
     Dosage: UNK
     Route: 033
     Dates: start: 20161116

REACTIONS (2)
  - Pain [Recovering/Resolving]
  - Incorrect route of drug administration [Recovering/Resolving]

NARRATIVE: CASE EVENT DATE: 20161116
